FAERS Safety Report 9103051 (Version 2)
Quarter: 2014Q2

REPORT INFORMATION
  Report Type: Spontaneous
  Country: CA (occurrence: CA)
  Receive Date: 20130219
  Receipt Date: 20140522
  Transmission Date: 20141212
  Serious: Yes (Other)
  Sender: FDA-Public Use
  Company Number: CA-PFIZER INC-2013060445

PATIENT
  Age: 61 Year
  Sex: Male
  Weight: 124 kg

DRUGS (2)
  1. TECTA [Suspect]
     Dosage: 40 MG, UNK
  2. NEXIUM [Suspect]
     Indication: GASTRIC PH DECREASED
     Dosage: 40 MG, 1X/DAY
     Route: 048

REACTIONS (3)
  - Hiatus hernia [Unknown]
  - Abdominal discomfort [Unknown]
  - Disease recurrence [Unknown]
